FAERS Safety Report 4816510-9 (Version None)
Quarter: 2005Q4

REPORT INFORMATION
  Report Type: 
  Country: None (occurrence: None)
  Receive Date: 20051101
  Receipt Date: 20041118
  Transmission Date: 20060501
  Serious: Yes (Disabling)
  Sender: FDA-Public Use
  Company Number: PHEH2004US12514

PATIENT
  Age: 43 Year
  Sex: Male

DRUGS (3)
  1. LAMISIL [Suspect]
     Indication: NAIL TINEA
     Dosage: 250 MG, QD
     Route: 048
     Dates: start: 20021201, end: 20030401
  2. ZANTAC [Concomitant]
     Indication: GASTROOESOPHAGEAL REFLUX DISEASE
  3. TYLENOL (CAPLET) [Concomitant]

REACTIONS (5)
  - BRUXISM [None]
  - DEPRESSION [None]
  - DYSGEUSIA [None]
  - HEADACHE [None]
  - NERVE INJURY [None]
